FAERS Safety Report 23943943 (Version 3)
Quarter: 2024Q2

REPORT INFORMATION
  Report Type: Spontaneous
  Country: PT (occurrence: PT)
  Receive Date: 20240606
  Receipt Date: 20240618
  Transmission Date: 20240716
  Serious: Yes (Other)
  Sender: FDA-Public Use
  Company Number: PT-OPELLA-2024OHG017377

PATIENT
  Age: 48 Year
  Sex: Male

DRUGS (2)
  1. IBUPROFEN [Suspect]
     Active Substance: IBUPROFEN
     Indication: Pyrexia
     Dosage: UNK
     Route: 065
  2. IBUPROFEN [Suspect]
     Active Substance: IBUPROFEN
     Indication: Rhinorrhoea

REACTIONS (15)
  - Rhabdomyolysis [Unknown]
  - Carnitine palmitoyltransferase deficiency [Unknown]
  - Haemoglobinuria [Unknown]
  - Blood lactate dehydrogenase increased [Unknown]
  - Abdominal pain [Unknown]
  - White blood cell count increased [Unknown]
  - Conjunctival hyperaemia [Unknown]
  - Chromaturia [Unknown]
  - C-reactive protein increased [Unknown]
  - Myoglobin blood increased [Unknown]
  - Myalgia [Unknown]
  - Nasal congestion [Unknown]
  - Proteinuria [Unknown]
  - Blood creatine phosphokinase increased [Unknown]
  - Transaminases increased [Unknown]
